FAERS Safety Report 19551951 (Version 1)
Quarter: 2021Q3

REPORT INFORMATION
  Report Type: Spontaneous
  Country: MX (occurrence: MX)
  Receive Date: 20210715
  Receipt Date: 20210715
  Transmission Date: 20211014
  Serious: Yes (Life-Threatening, Hospitalization, Other)
  Sender: FDA-Public Use
  Company Number: MX-CURIUM-2021000529

PATIENT
  Age: 1 Year
  Sex: Female
  Weight: 5 kg

DRUGS (2)
  1. TECHNESCAN DTPA [Suspect]
     Active Substance: TECHNETIUM TC-99M PENTETATE
     Route: 048
     Dates: start: 20210630, end: 20210630
  2. ULTRA?TECHNEKOW FM [Suspect]
     Active Substance: TECHNETIUM TC-99M SODIUM PERTECHNETATE
     Dosage: 129.5 MBQ
     Route: 048
     Dates: start: 20210630, end: 20210630

REACTIONS (4)
  - Product use issue [Recovered/Resolved]
  - Aspiration [Recovering/Resolving]
  - Respiratory arrest [Recovered/Resolved]
  - Vomiting [Recovering/Resolving]

NARRATIVE: CASE EVENT DATE: 20210630
